FAERS Safety Report 19911541 (Version 1)
Quarter: 2021Q4

REPORT INFORMATION
  Report Type: Spontaneous
  Country: US (occurrence: US)
  Receive Date: 20211001
  Receipt Date: 20211001
  Transmission Date: 20220304
  Serious: No
  Sender: FDA-Public Use
  Company Number: None

PATIENT
  Sex: Female

DRUGS (1)
  1. TIGECYCLINE [Suspect]
     Active Substance: TIGECYCLINE
     Indication: Bacteraemia
     Dosage: PATIENT STARTED ON 25 MG ON 7/19/2021. PATIENT^S DOSE INCREASED TO 50 MG ON 8/29/2021
     Route: 042
     Dates: start: 20210719

REACTIONS (2)
  - Nausea [None]
  - Vomiting [None]
